FAERS Safety Report 7544444-8 (Version None)
Quarter: 2011Q2

REPORT INFORMATION
  Report Type: 
  Country: None (occurrence: None)
  Receive Date: 20110613
  Receipt Date: 20090615
  Transmission Date: 20111010
  Serious: Yes (Hospitalization, Other)
  Sender: FDA-Public Use
  Company Number: PHHY2009TW22484

PATIENT
  Sex: Male
  Weight: 42.5 kg

DRUGS (2)
  1. NPH INSULIN [Concomitant]
     Indication: DIABETES MELLITUS
     Dosage: UNK
     Dates: start: 20040616
  2. EXJADE [Suspect]
     Indication: THALASSAEMIA
     Dosage: 1500 MG, QD
     Route: 048
     Dates: start: 20090429

REACTIONS (6)
  - DIABETIC KETOACIDOSIS [None]
  - TRICUSPID VALVE INCOMPETENCE [None]
  - BLOOD GLUCOSE INCREASED [None]
  - VOMITING [None]
  - MITRAL VALVE INCOMPETENCE [None]
  - ABDOMINAL PAIN [None]
